FAERS Safety Report 25438409 (Version 9)
Quarter: 2025Q4

REPORT INFORMATION
  Report Type: Report from Study
  Country: BR (occurrence: BR)
  Receive Date: 20250616
  Receipt Date: 20251124
  Transmission Date: 20260117
  Serious: Yes (Hospitalization, Other)
  Sender: TAKEDA
  Company Number: BR-TAKEDA-2025TUS051175

PATIENT
  Age: 57 Year
  Sex: Female

DRUGS (12)
  1. VEDOLIZUMAB [Suspect]
     Active Substance: VEDOLIZUMAB
     Indication: Crohn^s disease
     Dosage: 300 MILLIGRAM
  2. USTEKINUMAB [Concomitant]
     Active Substance: USTEKINUMAB
     Dosage: UNK
  3. ROSUVASTATIN [Concomitant]
     Active Substance: ROSUVASTATIN
     Dosage: UNK
  4. ASPIRIN [Concomitant]
     Active Substance: ASPIRIN
     Dosage: UNK
  5. AMLODIPINE [Concomitant]
     Active Substance: AMLODIPINE BESYLATE
     Dosage: UNK
  6. PREDNISONE [Concomitant]
     Active Substance: PREDNISONE
     Dosage: 15 MILLIGRAM, QD
  7. METHOTREXATE [Concomitant]
     Active Substance: METHOTREXATE
     Dosage: UNK
  8. PURAN [Concomitant]
     Active Substance: LEVOTHYROXINE SODIUM
     Dosage: UNK
  9. FOLIC ACID [Concomitant]
     Active Substance: FOLIC ACID
     Dosage: UNK
  10. VITAMIN D [Concomitant]
     Active Substance: VITAMIN D NOS
     Dosage: UNK
  11. PROLIA [Concomitant]
     Active Substance: DENOSUMAB
     Dosage: UNK
  12. CLONAZEPAM [Concomitant]
     Active Substance: CLONAZEPAM
     Dosage: UNK

REACTIONS (29)
  - Crohn^s disease [Unknown]
  - Gastrointestinal infection [Unknown]
  - Infection [Unknown]
  - Rheumatoid arthritis [Unknown]
  - Procedural complication [Unknown]
  - Rheumatic fever [Unknown]
  - Glaucoma [Unknown]
  - Meniere^s disease [Unknown]
  - Autoimmune disorder [Unknown]
  - Ototoxicity [Unknown]
  - Syncope [Unknown]
  - Acute myocardial infarction [Unknown]
  - Eye ulcer [Unknown]
  - Diarrhoea [Unknown]
  - Osteoporosis [Unknown]
  - Skin lesion [Unknown]
  - Alopecia [Unknown]
  - Malabsorption [Unknown]
  - Coronary artery disease [Unknown]
  - Vertigo positional [Unknown]
  - Eye paraesthesia [Unknown]
  - Weight decreased [Unknown]
  - Inappropriate schedule of product administration [Recovered/Resolved]
  - Insomnia [Unknown]
  - Blood pressure abnormal [Unknown]
  - Product dose omission issue [Recovering/Resolving]
  - Malaise [Unknown]
  - Dizziness [Unknown]
  - Hypertension [Unknown]

NARRATIVE: CASE EVENT DATE: 20250821
